FAERS Safety Report 8891393 (Version 1)
Quarter: 2012Q4

REPORT INFORMATION
  Report Type: Spontaneous
  Country: US (occurrence: None)
  Receive Date: 20121105
  Receipt Date: 20121105
  Transmission Date: 20130627
  Serious: No
  Sender: FDA-Public Use
  Company Number: None

PATIENT
  Age: 47 Year
  Sex: Female
  Weight: 78.2 kg

DRUGS (2)
  1. MONTELUKAST [Suspect]
     Indication: ALLERGIC RHINITIS
     Route: 048
     Dates: start: 20120817
  2. MONTEKULAST [Concomitant]

REACTIONS (1)
  - Hallucination, visual [None]
